FAERS Safety Report 8599564-6 (Version None)
Quarter: 2012Q3

REPORT INFORMATION
  Report Type: 
  Country: None (occurrence: None)
  Receive Date: 20120816
  Receipt Date: 20110112
  Transmission Date: 20120928
  Serious: No
  Sender: FDA-Public Use
  Company Number: IT-AMGEN-ITASP2011001897

PATIENT
  Age: 70 Year
  Sex: Female

DRUGS (1)
  1. GRANULOKINE [Suspect]
     Dosage: UNK

REACTIONS (1)
  - NEUTROPENIA [None]
